FAERS Safety Report 5955042-1 (Version None)
Quarter: 2008Q4

REPORT INFORMATION
  Report Type: 
  Country: None (occurrence: None)
  Receive Date: 20081117
  Receipt Date: 20081110
  Transmission Date: 20090506
  Serious: Yes (Hospitalization, Other)
  Sender: FDA-Public Use
  Company Number: B0529922A

PATIENT
  Age: 38 Year
  Sex: Male
  Weight: 65 kg

DRUGS (3)
  1. AMOXICILLIN [Suspect]
     Dosage: 1500MG PER DAY
     Route: 048
     Dates: start: 20060910, end: 20060916
  2. CLARITHROMYCIN [Suspect]
     Dosage: 400MG PER DAY
     Route: 048
     Dates: start: 20060910, end: 20060916
  3. LANSOPRAZOLE [Suspect]
     Dosage: 60MG PER DAY
     Route: 048
     Dates: start: 20060910, end: 20060916

REACTIONS (18)
  - ABDOMINAL PAIN [None]
  - ABSCESS [None]
  - ANAEMIA [None]
  - ANOREXIA [None]
  - C-REACTIVE PROTEIN INCREASED [None]
  - CACHEXIA [None]
  - COLITIS ULCERATIVE [None]
  - COLONIC STENOSIS [None]
  - CONDITION AGGRAVATED [None]
  - DIARRHOEA [None]
  - HAEMATOCHEZIA [None]
  - HEPATIC FUNCTION ABNORMAL [None]
  - LARGE INTESTINAL ULCER [None]
  - MELAENA [None]
  - MUCOUS STOOLS [None]
  - PYREXIA [None]
  - ULCER [None]
  - WHITE BLOOD CELL COUNT INCREASED [None]
